FAERS Safety Report 7560403-3 (Version None)
Quarter: 2011Q2

REPORT INFORMATION
  Report Type: 
  Country: None (occurrence: None)
  Receive Date: 20110621
  Receipt Date: 20110615
  Transmission Date: 20111010
  Serious: Yes (Hospitalization, Other)
  Sender: FDA-Public Use
  Company Number: GB-ROXANE LABORATORIES, INC.-2011-RO-00818RO

PATIENT
  Age: 19 Month
  Sex: Female
  Weight: 11 kg

DRUGS (1)
  1. METHOTREXATE [Suspect]
     Indication: ACCIDENTAL EXPOSURE
     Route: 048

REACTIONS (3)
  - ACCIDENTAL DRUG INTAKE BY CHILD [None]
  - TOXICITY TO VARIOUS AGENTS [None]
  - BLOOD ALKALINE PHOSPHATASE INCREASED [None]
